FAERS Safety Report 4435468-8 (Version None)
Quarter: 2004Q3

REPORT INFORMATION
  Report Type: 
  Country: None (occurrence: None)
  Receive Date: 20040826
  Receipt Date: 20040817
  Transmission Date: 20050211
  Serious: Yes (Hospitalization)
  Sender: FDA-Public Use
  Company Number: NUBN20040014

PATIENT
  Age: 77 Year
  Sex: Male
  Weight: 81 kg

DRUGS (11)
  1. NUBAIN [Suspect]
     Dosage: 20 MG DAILY IV
     Route: 042
     Dates: start: 20040421, end: 20040421
  2. TRACRIUM [Suspect]
     Dosage: IV
     Route: 042
     Dates: start: 20040421, end: 20040421
  3. ULTIVA [Suspect]
     Dosage: DAILY IV
     Route: 042
     Dates: start: 20040421, end: 20040421
  4. CATAPRES [Suspect]
     Dosage: 20 MG DAILY  IV
     Route: 042
     Dates: start: 20040421, end: 20040421
  5. EPHEDRINE SUL CAP [Suspect]
     Dosage: 20 MG DAILY  IV
     Route: 042
     Dates: start: 20040421, end: 20040421
  6. ATARAX [Suspect]
     Dosage: 15 MG DAILY PO
     Route: 048
     Dates: start: 20040420, end: 20040421
  7. SEVORANE [Suspect]
     Dosage: 200 MG DAILY   UNK
     Dates: start: 20040421, end: 20040421
  8. PARACETAMOL [Suspect]
     Dates: start: 20040421
  9. LAROXYL        35 UNK [Suspect]
     Indication: DEPRESSION
     Dosage: DAILY
     Dates: start: 20040421
  10. LIPANOR [Concomitant]
  11. FLUDEX SR [Concomitant]

REACTIONS (4)
  - BLOOD TRIGLYCERIDES INCREASED [None]
  - FLATULENCE [None]
  - NUCLEAR MAGNETIC RESONANCE IMAGING ABNORMAL [None]
  - PANCREATITIS [None]
